FAERS Safety Report 8875176 (Version 2)
Quarter: 2015Q1

REPORT INFORMATION
  Report Type: Report from Study
  Country: US (occurrence: US)
  Receive Date: 20121030
  Receipt Date: 20150126
  Transmission Date: 20150721
  Serious: Yes (Other)
  Sender: FDA-Public Use
  Company Number: US-ROCHE-1140339

PATIENT
  Sex: Male
  Weight: 31 kg

DRUGS (9)
  1. IMURAN [Concomitant]
     Active Substance: AZATHIOPRINE
  2. NUTROPIN AQ [Suspect]
     Active Substance: SOMATROPIN
     Route: 058
  3. NUTROPIN AQ [Suspect]
     Active Substance: SOMATROPIN
     Route: 058
  4. PREDNISONE. [Concomitant]
     Active Substance: PREDNISONE
     Route: 065
  5. PREDNISONE. [Concomitant]
     Active Substance: PREDNISONE
     Route: 065
  6. NUTROPIN AQ [Suspect]
     Active Substance: SOMATROPIN
     Indication: GROWTH HORMONE DEFICIENCY
     Route: 058
  7. PREVACID [Concomitant]
     Active Substance: LANSOPRAZOLE
  8. GLUCAGON. [Concomitant]
     Active Substance: GLUCAGON
  9. CLONIDINE. [Concomitant]
     Active Substance: CLONIDINE

REACTIONS (5)
  - Chronic kidney disease [Unknown]
  - Drug dose omission [Unknown]
  - Infectious colitis [Unknown]
  - Anaemia [Unknown]
  - Colitis [Unknown]
